FAERS Safety Report 10165919 (Version 1)
Quarter: 2014Q2

REPORT INFORMATION
  Report Type: Spontaneous
  Country: US (occurrence: US)
  Receive Date: 20140510
  Receipt Date: 20140510
  Transmission Date: 20141212
  Serious: No
  Sender: FDA-Public Use
  Company Number: US-BRISTOL-MYERS SQUIBB COMPANY-19971100

PATIENT
  Age: 79 Year
  Sex: Male
  Weight: 65.76 kg

DRUGS (5)
  1. BYDUREON [Suspect]
     Dosage: NO OF DOSES:3
  2. AMARYL [Concomitant]
  3. ACTOS [Concomitant]
  4. ASPIRIN [Concomitant]
  5. VITAMINS [Concomitant]

REACTIONS (1)
  - Dry mouth [Unknown]
